FAERS Safety Report 5274756-2 (Version None)
Quarter: 2007Q1

REPORT INFORMATION
  Report Type: 
  Country: None (occurrence: None)
  Receive Date: 20070321
  Receipt Date: 20070305
  Transmission Date: 20070707
  Serious: Yes (Life-Threatening, Hospitalization)
  Sender: FDA-Public Use
  Company Number: T200700169

PATIENT
  Age: 87 Year
  Sex: Female
  Weight: 58 kg

DRUGS (10)
  1. OPTIRAY 300 [Suspect]
     Indication: COMPUTERISED TOMOGRAM THORAX
     Dosage: 95 ML, SINGLE, INTRAVENOUS
     Route: 042
     Dates: start: 20070206, end: 20070206
  2. SYNTHROID [Concomitant]
  3. LASIX [Concomitant]
  4. ASPIRIN [Concomitant]
  5. VERAPAMIL [Concomitant]
  6. OMEPRAZOLE [Concomitant]
  7. CELEBREX [Concomitant]
  8. ZELNORM /01470301/ (TEGASEROD) [Concomitant]
  9. K-DUR 10 [Concomitant]
  10. COUMADIN [Concomitant]

REACTIONS (4)
  - AIR EMBOLISM [None]
  - CARDIO-RESPIRATORY ARREST [None]
  - DRUG ADMINISTRATION ERROR [None]
  - RESPIRATORY FAILURE [None]
